FAERS Safety Report 10932672 (Version 1)
Quarter: 2015Q1

REPORT INFORMATION
  Report Type: Spontaneous
  Country: US (occurrence: None)
  Receive Date: 20150319
  Receipt Date: 20150319
  Transmission Date: 20150721
  Serious: Yes (Hospitalization)
  Sender: FDA-Public Use
  Company Number: None

PATIENT
  Age: 50 Year
  Sex: Male
  Weight: 74.84 kg

DRUGS (1)
  1. KEPPRA [Suspect]
     Active Substance: LEVETIRACETAM
     Indication: CONVULSION PROPHYLAXIS
     Dosage: 2 PILLS PER DAY TWICE DAILY TAKEN BY MOUTH
     Route: 048
     Dates: start: 20140222, end: 20140421

REACTIONS (6)
  - Intentional overdose [None]
  - Depression [None]
  - Feeling abnormal [None]
  - Panic reaction [None]
  - Asphyxia [None]
  - Suicide attempt [None]

NARRATIVE: CASE EVENT DATE: 20140713
